FAERS Safety Report 12139946 (Version 1)
Quarter: 2016Q1

REPORT INFORMATION
  Report Type: Spontaneous
  Country: FR (occurrence: FR)
  Receive Date: 20160303
  Receipt Date: 20160303
  Transmission Date: 20160526
  Serious: Yes (Other)
  Sender: FDA-Public Use
  Company Number: FR-BRISTOL-MYERS SQUIBB COMPANY-BMS-2016-014219

PATIENT
  Age: 55 Year
  Sex: Male

DRUGS (7)
  1. NEO-MERCAZOLE [Suspect]
     Active Substance: CARBIMAZOLE
     Dosage: 10 MG, UNK
     Route: 065
     Dates: end: 20151222
  2. OPDIVO [Suspect]
     Active Substance: NIVOLUMAB
     Dosage: 185 MG, UNK
     Route: 042
     Dates: start: 20150901, end: 20150901
  3. OPDIVO [Suspect]
     Active Substance: NIVOLUMAB
     Dosage: 185 MG, UNK
     Route: 042
     Dates: start: 20151110, end: 20151110
  4. NEO-MERCAZOLE [Suspect]
     Active Substance: CARBIMAZOLE
     Indication: PRODUCT USED FOR UNKNOWN INDICATION
     Dosage: 20 MG, QD
     Route: 065
     Dates: start: 20151016
  5. OPDIVO [Suspect]
     Active Substance: NIVOLUMAB
     Indication: PRODUCT USED FOR UNKNOWN INDICATION
     Dosage: 185 MG, UNK
     Route: 042
     Dates: start: 20150811, end: 20150811
  6. OPDIVO [Suspect]
     Active Substance: NIVOLUMAB
     Dosage: 185 MG, UNK
     Route: 042
     Dates: start: 20151124, end: 20151124
  7. OPDIVO [Suspect]
     Active Substance: NIVOLUMAB
     Dosage: 185 MG, UNK
     Route: 042
     Dates: start: 20150915, end: 20150915

REACTIONS (2)
  - Hepatitis cholestatic [Recovered/Resolved]
  - Hyperthyroidism [Recovered/Resolved]

NARRATIVE: CASE EVENT DATE: 20150914
